FAERS Safety Report 10698391 (Version 1)
Quarter: 2015Q1

REPORT INFORMATION
  Report Type: Spontaneous
  Country: BR (occurrence: BR)
  Receive Date: 20150108
  Receipt Date: 20150108
  Transmission Date: 20150721
  Serious: Yes (Hospitalization, Other)
  Sender: FDA-Public Use
  Company Number: BR-BRISTOL-MYERS SQUIBB COMPANY-BMS-2014-004711

PATIENT
  Sex: Female
  Weight: 86 kg

DRUGS (11)
  1. PROPRANOLOL [Concomitant]
     Active Substance: PROPRANOLOL\PROPRANOLOL HYDROCHLORIDE
     Indication: HYPERTENSION
  2. GLIFAGE [Suspect]
     Active Substance: METFORMIN HYDROCHLORIDE
     Indication: DIABETES MELLITUS
     Dosage: UNK, QD
     Route: 048
     Dates: end: 201404
  3. MONOCORDIL [Concomitant]
     Active Substance: ISOSORBIDE MONONITRATE
     Indication: ANGINA PECTORIS
  4. DILTIAZEM [Concomitant]
     Active Substance: DILTIAZEM
     Indication: HYPERTENSION
  5. VERTIGIUM [Concomitant]
     Active Substance: FLUNARIZINE HYDROCHLORIDE
     Indication: LABYRINTHITIS
  6. VITAMIN D                          /00107901/ [Concomitant]
     Active Substance: ERGOCALCIFEROL
  7. AAS [Concomitant]
     Active Substance: ASPIRIN
  8. PROPRANOLOL [Concomitant]
     Active Substance: PROPRANOLOL\PROPRANOLOL HYDROCHLORIDE
     Indication: ANGINA PECTORIS
  9. PURAN [Concomitant]
     Active Substance: LEVOTHYROXINE SODIUM
     Indication: HYPOTHYROIDISM
  10. INDAPAMIDE. [Concomitant]
     Active Substance: INDAPAMIDE
     Indication: HYPERTENSION
  11. ROSUVASTATIN [Concomitant]
     Active Substance: ROSUVASTATIN
     Indication: BLOOD CHOLESTEROL INCREASED

REACTIONS (3)
  - Chest pain [Not Recovered/Not Resolved]
  - Diarrhoea [Recovered/Resolved]
  - Angioplasty [Recovered/Resolved]

NARRATIVE: CASE EVENT DATE: 2013
